FAERS Safety Report 5711186-0 (Version None)
Quarter: 2008Q2

REPORT INFORMATION
  Report Type: 
  Country: None (occurrence: None)
  Receive Date: 20080421
  Receipt Date: 20080410
  Transmission Date: 20081010
  Serious: Yes (Hospitalization)
  Sender: FDA-Public Use
  Company Number: FR-AVENTIS-200811391FR

PATIENT
  Age: 71 Year
  Sex: Male

DRUGS (14)
  1. LOVENOX [Suspect]
     Route: 058
     Dates: start: 20080208, end: 20080214
  2. CEFAZOLINE PANPHARMA [Concomitant]
     Dates: start: 20080207, end: 20080207
  3. PROFENID [Concomitant]
     Dates: start: 20080208, end: 20080208
  4. INIPOMP                            /01263201/ [Concomitant]
     Dates: start: 20080208, end: 20080208
  5. TRAMADOL HCL [Concomitant]
     Dates: start: 20080208, end: 20080208
  6. LASILIX                            /00032601/ [Concomitant]
     Dates: end: 20080206
  7. ZESTORETIC [Concomitant]
     Dates: end: 20080206
  8. ATENOLOL [Concomitant]
     Dates: end: 20080206
  9. NIDREL [Concomitant]
     Dates: end: 20080206
  10. CYCLO                              /00801901/ [Concomitant]
     Dates: end: 20080206
  11. STAGID [Concomitant]
     Dates: end: 20080206
  12. ATARAX                             /00058402/ [Concomitant]
     Dates: start: 20080201
  13. ZYRTEC [Concomitant]
     Dates: start: 20080201
  14. NEURONTIN [Concomitant]
     Dates: start: 20080201

REACTIONS (4)
  - DERMATITIS EXFOLIATIVE [None]
  - EOSINOPHILIA [None]
  - ERYTHEMA [None]
  - PYREXIA [None]
